FAERS Safety Report 9254180 (Version 1)
Quarter: 2013Q2

REPORT INFORMATION
  Report Type: Spontaneous
  Country: PL (occurrence: PL)
  Receive Date: 20130425
  Receipt Date: 20130425
  Transmission Date: 20140414
  Serious: Yes (Other)
  Sender: FDA-Public Use
  Company Number: PHHY2013PL038704

PATIENT
  Age: 47 Year
  Sex: 0

DRUGS (7)
  1. EVEROLIMUS [Suspect]
     Indication: HEART TRANSPLANT
     Dosage: 1.5 MG, UNK
     Dates: start: 20061018
  2. CELLCEPT [Concomitant]
     Indication: IMMUNOSUPPRESSION
     Dosage: 1500 MG, UNK
  3. TACROLIMUS [Concomitant]
     Indication: IMMUNOSUPPRESSION
     Dosage: 6 MG, UNK
  4. TACROLIMUS [Concomitant]
     Dosage: 2 MG, UNK
     Dates: start: 20061018
  5. STEROIDS NOS [Concomitant]
     Indication: IMMUNOSUPPRESSION
     Dosage: 5 MG, UNK
  6. STEROIDS NOS [Concomitant]
     Dosage: 5 MG, UNK
     Dates: start: 20061018
  7. NEORAL [Concomitant]
     Indication: IMMUNOSUPPRESSION
     Dosage: 150 MG, UNK

REACTIONS (15)
  - Diastolic dysfunction [Unknown]
  - Ejection fraction decreased [Unknown]
  - Ventricular hypokinesia [Unknown]
  - Circulatory collapse [Unknown]
  - Fluid overload [Unknown]
  - Ascites [Unknown]
  - Pleural effusion [Unknown]
  - Dyspnoea at rest [Unknown]
  - Atelectasis [Unknown]
  - Blood creatinine increased [Unknown]
  - Localised oedema [Unknown]
  - Oedema peripheral [Unknown]
  - Blood urea increased [Unknown]
  - Creatinine renal clearance decreased [Unknown]
  - Tricuspid valve incompetence [Unknown]
